FAERS Safety Report 4726671-8 (Version None)
Quarter: 2005Q3

REPORT INFORMATION
  Report Type: 
  Country: None (occurrence: None)
  Receive Date: 20050727
  Receipt Date: 20050629
  Transmission Date: 20060218
  Serious: Yes (Death)
  Sender: FDA-Public Use
  Company Number: JP-MERCK-0507USA00195

PATIENT
  Age: 84 Year
  Sex: Male

DRUGS (6)
  1. PEPCID [Suspect]
     Route: 042
     Dates: start: 20050401, end: 20050629
  2. [THERAPY UNSPECIFIED] [Concomitant]
     Route: 042
     Dates: start: 20050422
  3. HUMULIN R [Concomitant]
     Route: 058
     Dates: start: 20050422
  4. [THERAPY UNSPECIFIED] [Concomitant]
     Route: 042
     Dates: start: 20050422
  5. [THERAPY UNSPECIFIED] [Concomitant]
     Route: 041
     Dates: start: 20050422
  6. BISOLVON [Concomitant]
     Route: 065
     Dates: start: 20050518

REACTIONS (3)
  - ALANINE AMINOTRANSFERASE INCREASED [None]
  - ASPARTATE AMINOTRANSFERASE INCREASED [None]
  - PNEUMONIA [None]
